FAERS Safety Report 17449312 (Version 1)
Quarter: 2020Q1

REPORT INFORMATION
  Report Type: Spontaneous
  Country: AU (occurrence: AU)
  Receive Date: 20200224
  Receipt Date: 20200224
  Transmission Date: 20200409
  Serious: Yes (Hospitalization)
  Sender: FDA-Public Use
  Company Number: AU-PFIZER INC-2020079776

PATIENT
  Sex: Female

DRUGS (3)
  1. TAPENTADOL [Concomitant]
     Active Substance: TAPENTADOL
     Dosage: DOSE OF TEPENTADOL WAS TRIPLED
  2. ENTRESTO [Interacting]
     Active Substance: SACUBITRIL\VALSARTAN
     Dosage: UNK
     Dates: start: 20200131
  3. RAMIPRIL. [Suspect]
     Active Substance: RAMIPRIL
     Dosage: UNK
     Dates: start: 201912

REACTIONS (4)
  - Blood pressure systolic decreased [Unknown]
  - Somnolence [Unknown]
  - Drug interaction [Unknown]
  - Back pain [Unknown]
